FAERS Safety Report 21053313 (Version 1)
Quarter: 2022Q3

REPORT INFORMATION
  Report Type: Spontaneous
  Country: IT (occurrence: IT)
  Receive Date: 20220707
  Receipt Date: 20220707
  Transmission Date: 20221027
  Serious: Yes (Hospitalization)
  Sender: FDA-Public Use
  Company Number: IT-MYLANLABS-2022M1051348

PATIENT
  Age: 53 Year
  Sex: Male

DRUGS (7)
  1. EPINEPHRINE [Suspect]
     Active Substance: EPINEPHRINE
     Indication: Hypotension
     Dosage: UNK (INTRAVENOUS INFUSION)
     Route: 042
  2. EPINEPHRINE [Suspect]
     Active Substance: EPINEPHRINE
     Indication: Haemodynamic instability
  3. FUROSEMIDE [Suspect]
     Active Substance: FUROSEMIDE
     Indication: Diuretic therapy
     Dosage: UNK
     Route: 065
  4. MEXILETINE [Suspect]
     Active Substance: MEXILETINE
     Indication: Ventricular tachycardia
     Dosage: UNK
     Route: 065
  5. METOPROLOL [Suspect]
     Active Substance: METOPROLOL
     Indication: Hypertension
     Dosage: UNK
     Route: 048
  6. MILRINONE [Suspect]
     Active Substance: MILRINONE
     Indication: Arrhythmia
     Dosage: UNK
     Route: 065
  7. LANDIOLOL [Concomitant]
     Active Substance: LANDIOLOL
     Indication: Tachyarrhythmia
     Dosage: 10 MICROGRAM/KILOGRAM, 10MCG/KG/MIN
     Route: 042

REACTIONS (2)
  - Drug ineffective [Unknown]
  - Tachycardia [Unknown]
